FAERS Safety Report 6808446-9 (Version None)
Quarter: 2010Q2

REPORT INFORMATION
  Report Type: 
  Country: None (occurrence: None)
  Receive Date: 20100629
  Receipt Date: 20090812
  Transmission Date: 20101027
  Serious: No
  Sender: FDA-Public Use
  Company Number: US-PFIZER INC-2009207132

PATIENT
  Age: 9 Year
  Sex: Male
  Weight: 45.4 kg

DRUGS (2)
  1. ZYVOX [Suspect]
     Indication: INFECTION PROPHYLAXIS
     Dosage: 600 MG, 1X/DAY
     Dates: start: 20090301, end: 20090429
  2. ACETYLSALICYLIC ACID [Concomitant]

REACTIONS (3)
  - ABDOMINAL PAIN UPPER [None]
  - PAIN [None]
  - TOOTH DISCOLOURATION [None]
